FAERS Safety Report 14696045 (Version 2)
Quarter: 2018Q2

REPORT INFORMATION
  Report Type: Spontaneous
  Country: FR (occurrence: FR)
  Receive Date: 20180329
  Receipt Date: 20180404
  Transmission Date: 20180711
  Serious: Yes (Hospitalization, Other)
  Sender: FDA-Public Use
  Company Number: FR-ALLERGAN-1816130US

PATIENT
  Age: 52 Year
  Sex: Male

DRUGS (2)
  1. BOTOX [Suspect]
     Active Substance: ONABOTULINUMTOXINA
     Indication: HEMIPLEGIA
     Dosage: UNK UNK, SINGLE
     Route: 030
  2. BOTOX [Suspect]
     Active Substance: ONABOTULINUMTOXINA
     Dosage: UNK UNK, SINGLE
     Route: 030

REACTIONS (6)
  - Discoloured vomit [Recovering/Resolving]
  - Pneumonia aspiration [Recovered/Resolved]
  - Off label use [Unknown]
  - Dysphagia [Recovering/Resolving]
  - Botulism [Recovering/Resolving]
  - Myoclonus [Recovering/Resolving]

NARRATIVE: CASE EVENT DATE: 20180213
